FAERS Safety Report 9172646 (Version 1)
Quarter: 2012Q4

REPORT INFORMATION
  Report Type: 
  Country: CA (occurrence: CA)
  Receive Date: 20120911
  Receipt Date: 20120911
  Transmission Date: 20130627
  Serious: Yes (Hospitalization)
  Sender: FDA-Public Use
  Company Number: CA-ROCHE-747924

PATIENT
  Age: 70 None
  Sex: Female
  Weight: 52 kg

DRUGS (11)
  1. AVASTIN [Suspect]
     Indication: COLORECTAL CANCER METASTATIC
     Route: 042
     Dates: start: 20100902, end: 20101202
  2. FOLINIC ACID [Suspect]
     Indication: PRODUCT USED FOR UNKNOWN INDICATION
     Route: 065
  3. LEUCOVORIN [Suspect]
     Indication: PRODUCT USED FOR UNKNOWN INDICATION
     Route: 042
  4. IRINOTECAN HYDROCHLORIDE [Suspect]
     Indication: PRODUCT USED FOR UNKNOWN INDICATION
     Route: 042
     Dates: start: 201009
  5. FLUOROURACIL [Suspect]
     Indication: PRODUCT USED FOR UNKNOWN INDICATION
     Route: 042
     Dates: start: 201009
  6. HEPARIN, LOW MOLECULAR WEIGHT [Concomitant]
     Route: 065
  7. HYDROMORPHONE [Concomitant]
     Indication: PAIN
     Route: 065
  8. RANITIDINE [Concomitant]
  9. LORAZEPAM [Concomitant]
     Indication: ANXIETY
  10. EZETROL [Concomitant]
     Indication: LIPIDS INCREASED
     Route: 065
  11. DEXAMETHASONE [Concomitant]
     Route: 065

REACTIONS (2)
  - Cardiac failure congestive [Recovered/Resolved]
  - Dyspnoea [Unknown]
